FAERS Safety Report 5198685-8 (Version None)
Quarter: 2007Q1

REPORT INFORMATION
  Report Type: 
  Country: None (occurrence: None)
  Receive Date: 20070104
  Receipt Date: 20061228
  Transmission Date: 20070707
  Serious: Yes (Hospitalization)
  Sender: FDA-Public Use
  Company Number: US-SANOFI-SYNTHELABO-A03200607710

PATIENT
  Sex: Female
  Weight: 72.7 kg

DRUGS (11)
  1. PLAQUENIL [Suspect]
     Indication: SYSTEMIC LUPUS ERYTHEMATOSUS
     Dosage: UNK
     Route: 048
  2. DIGOXIN [Concomitant]
     Dosage: UNK
     Route: 048
  3. GLYBURIDE [Concomitant]
     Dosage: UNK
     Route: 048
  4. ASPIRIN [Concomitant]
     Dosage: UNK
     Route: 048
  5. AMITRIPTYLINE HCL [Concomitant]
     Dosage: UNK
     Route: 048
  6. FUROSEMIDE [Concomitant]
     Dosage: UNK
     Route: 048
  7. FERROUS SULFATE TAB [Concomitant]
     Dosage: UNK
     Route: 048
  8. ALLOPURINOL SODIUM [Concomitant]
     Dosage: UNK
     Route: 048
  9. NAPROXEN [Concomitant]
     Dosage: UNK
     Route: 048
  10. METFORMIN HCL [Concomitant]
     Dosage: UNK
     Route: 048
  11. LISINOPRIL [Concomitant]
     Dosage: UNK
     Route: 048

REACTIONS (1)
  - ATRIOVENTRICULAR BLOCK COMPLETE [None]
